FAERS Safety Report 12798014 (Version 2)
Quarter: 2016Q4

REPORT INFORMATION
  Report Type: Spontaneous
  Country: JP (occurrence: JP)
  Receive Date: 20160930
  Receipt Date: 20161012
  Transmission Date: 20170207
  Serious: Yes (Hospitalization, Other)
  Sender: FDA-Public Use
  Company Number: JP-BRISTOL-MYERS SQUIBB COMPANY-BMS-2016-080651

PATIENT
  Age: 76 Year
  Sex: Male

DRUGS (1)
  1. OPDIVO [Suspect]
     Active Substance: NIVOLUMAB
     Indication: NON-SMALL CELL LUNG CANCER
     Route: 041

REACTIONS (2)
  - Sudden hearing loss [Not Recovered/Not Resolved]
  - Rash [Recovering/Resolving]

NARRATIVE: CASE EVENT DATE: 20160821
